FAERS Safety Report 14207480 (Version 1)
Quarter: 2017Q4

REPORT INFORMATION
  Report Type: Spontaneous
  Country: US (occurrence: None)
  Receive Date: 20171120
  Receipt Date: 20171120
  Transmission Date: 20180321
  Serious: Yes (Hospitalization)
  Sender: FDA-Public Use
  Company Number: None

PATIENT
  Age: 74 Year
  Sex: Female

DRUGS (11)
  1. AZILECT [Concomitant]
     Active Substance: RASAGILINE MESYLATE
  2. ZOLEDRONIC ACID 4MG [Suspect]
     Active Substance: ZOLEDRONIC ACID
     Indication: NEOPLASM MALIGNANT
     Route: 042
  3. CALCIUM [Concomitant]
     Active Substance: CALCIUM
  4. ASPIRIN. [Concomitant]
     Active Substance: ASPIRIN
  5. HYDROCHO [Concomitant]
  6. PROTONT [Concomitant]
  7. LISINOPRIL. [Concomitant]
     Active Substance: LISINOPRIL
  8. KLONOPIN [Concomitant]
     Active Substance: CLONAZEPAM
  9. SIMVASTATIN. [Concomitant]
     Active Substance: SIMVASTATIN
  10. ANASTROZOLE. [Concomitant]
     Active Substance: ANASTROZOLE
  11. NEUPRO [Concomitant]
     Active Substance: ROTIGOTINE

REACTIONS (1)
  - Surgery [None]

NARRATIVE: CASE EVENT DATE: 20171115
